FAERS Safety Report 25715039 (Version 1)
Quarter: 2025Q3

REPORT INFORMATION
  Report Type: Spontaneous
  Country: US (occurrence: None)
  Receive Date: 20250821
  Receipt Date: 20250821
  Transmission Date: 20251020
  Serious: Yes (Hospitalization)
  Sender: FDA-CTU
  Company Number: None

PATIENT
  Age: 15 Year
  Sex: Female

DRUGS (3)
  1. BALVERSA [Suspect]
     Active Substance: ERDAFITINIB
     Indication: Brain neoplasm malignant
     Dosage: FREQUENCY : DAILY;?
     Route: 048
     Dates: start: 20250520
  2. BALVERSA [Suspect]
     Active Substance: ERDAFITINIB
     Indication: Hereditary disorder
  3. BALVERSA [Suspect]
     Active Substance: ERDAFITINIB
     Indication: Disease risk factor

REACTIONS (4)
  - Seizure [None]
  - Visual impairment [None]
  - Alopecia [None]
  - Dry eye [None]

NARRATIVE: CASE EVENT DATE: 20250620
